FAERS Safety Report 25617111 (Version 1)
Quarter: 2025Q3

REPORT INFORMATION
  Report Type: Spontaneous
  Country: US (occurrence: US)
  Receive Date: 20250729
  Receipt Date: 20250729
  Transmission Date: 20251021
  Serious: No
  Sender: Kenvue
  Company Number: US-KENVUE-20250703752

PATIENT
  Age: 6 Year
  Sex: Male

DRUGS (1)
  1. CHILDRENS ZYRTEC HIVES RELIEF [Suspect]
     Active Substance: CETIRIZINE HYDROCHLORIDE
     Indication: Arthropod sting
     Route: 065

REACTIONS (2)
  - Product use in unapproved indication [Unknown]
  - Therapeutic response unexpected [Unknown]
